FAERS Safety Report 24887995 (Version 1)
Quarter: 2025Q1

REPORT INFORMATION
  Report Type: Report from Study
  Country: CN (occurrence: CN)
  Receive Date: 20250127
  Receipt Date: 20250127
  Transmission Date: 20250409
  Serious: Yes (Hospitalization, Other)
  Sender: GILEAD
  Company Number: CN-GILEAD-2025-0698731

PATIENT
  Age: 36 Year
  Sex: Female

DRUGS (4)
  1. SACITUZUMAB GOVITECAN-HZIY [Suspect]
     Active Substance: SACITUZUMAB GOVITECAN-HZIY
     Indication: Breast cancer
     Dosage: 540 MG, C1D1, 8 VIA INTRAVENOUS DRIP, EVERY THREE WEEKS (Q3W) TREATMENT
     Route: 041
     Dates: start: 20241113
  2. SACITUZUMAB GOVITECAN-HZIY [Suspect]
     Active Substance: SACITUZUMAB GOVITECAN-HZIY
     Dosage: 540 MG,C2D1 D8  Q3WK
     Route: 041
     Dates: start: 20241205
  3. SACITUZUMAB GOVITECAN-HZIY [Suspect]
     Active Substance: SACITUZUMAB GOVITECAN-HZIY
     Dosage: C4D1,360MG DL, 540MG D8 VIA INTRAVENOUS DRIP (IF THE DOSE OF SACITUZUMAB GOVITECAN ON D8 IS  REDUCED
     Route: 041
     Dates: start: 20250116
  4. SACITUZUMAB GOVITECAN-HZIY [Suspect]
     Active Substance: SACITUZUMAB GOVITECAN-HZIY
     Dosage: C4D8,360MGDL, 540MG D8 INTRAVENOUS DRIP, Q3W
     Route: 041
     Dates: start: 20250123

REACTIONS (4)
  - Myelosuppression [Unknown]
  - Metastases to lung [Unknown]
  - Metastases to bone [Unknown]
  - Metastases to central nervous system [Unknown]

NARRATIVE: CASE EVENT DATE: 20241101
